FAERS Safety Report 16457994 (Version 1)
Quarter: 2019Q2

REPORT INFORMATION
  Report Type: Spontaneous
  Country: NL (occurrence: NL)
  Receive Date: 20190620
  Receipt Date: 20190620
  Transmission Date: 20190711
  Serious: Yes (Other)
  Sender: FDA-Public Use
  Company Number: NL-MYLANLABS-2019M1056854

PATIENT
  Age: 37 Year
  Sex: Female

DRUGS (8)
  1. DOXORUBICIN [Suspect]
     Active Substance: DOXORUBICIN
     Dosage: UNK (6 CYCLES)
     Route: 065
     Dates: start: 20180302
  2. CISPLATIN. [Suspect]
     Active Substance: CISPLATIN
     Indication: METASTASES TO NERVOUS SYSTEM
     Dosage: UNK (6 CYCLES)
     Route: 065
     Dates: start: 20160502, end: 20160930
  3. BICALUTAMIDE. [Suspect]
     Active Substance: BICALUTAMIDE
     Indication: ANDROGEN THERAPY
     Dosage: UNK
     Route: 065
     Dates: start: 20181003
  4. ZOLADEX [Suspect]
     Active Substance: GOSERELIN ACETATE
     Indication: ANDROGEN THERAPY
     Dosage: UNK
     Route: 065
     Dates: start: 20181003
  5. DOXORUBICIN [Suspect]
     Active Substance: DOXORUBICIN
     Indication: METASTASES TO NERVOUS SYSTEM
     Dosage: UNK (6 CYCLES)
     Route: 065
     Dates: start: 20160502, end: 20160930
  6. CYCLOPHOSPHAMIDE. [Suspect]
     Active Substance: CYCLOPHOSPHAMIDE
     Indication: METASTASES TO NERVOUS SYSTEM
     Dosage: UNK (6 CYCLES)
     Route: 065
     Dates: start: 20160502, end: 20160930
  7. CYCLOPHOSPHAMIDE. [Suspect]
     Active Substance: CYCLOPHOSPHAMIDE
     Dosage: UNK (6 CYCLES)
     Route: 065
     Dates: start: 20180302
  8. CISPLATIN. [Suspect]
     Active Substance: CISPLATIN
     Dosage: UNK (6 CYCLES)
     Route: 065
     Dates: start: 20180302

REACTIONS (3)
  - Malignant neoplasm progression [Unknown]
  - Metastases to central nervous system [Unknown]
  - Therapeutic product effect incomplete [Unknown]

NARRATIVE: CASE EVENT DATE: 20170613
